FAERS Safety Report 7833842-0 (Version None)
Quarter: 2011Q4

REPORT INFORMATION
  Report Type: 
  Country: None (occurrence: None)
  Receive Date: 20111024
  Receipt Date: 20111014
  Transmission Date: 20120403
  Serious: Yes (Other)
  Sender: FDA-Public Use
  Company Number: US-GLAXOSMITHKLINE-B0727159A

PATIENT
  Sex: Female
  Weight: 73.6 kg

DRUGS (1)
  1. ROSIGLITAZONE MALEATE [Suspect]
     Indication: DIABETES MELLITUS
     Route: 048

REACTIONS (4)
  - OEDEMA [None]
  - HYPERLIPIDAEMIA [None]
  - LIVER INJURY [None]
  - HYPERTENSION [None]
